FAERS Safety Report 20738732 (Version 2)
Quarter: 2022Q3

REPORT INFORMATION
  Report Type: Spontaneous
  Country: US (occurrence: US)
  Receive Date: 20220422
  Receipt Date: 20220908
  Transmission Date: 20221027
  Serious: Yes (Other)
  Sender: FDA-Public Use
  Company Number: US-AMGEN-USASP2022068629

PATIENT
  Age: 3 Year
  Sex: Male

DRUGS (2)
  1. IVABRADINE [Suspect]
     Active Substance: IVABRADINE
     Indication: Atrial tachycardia
     Dosage: 0.05 MILLIGRAM/KILOGRAM, BID
     Route: 065
  2. IVABRADINE [Suspect]
     Active Substance: IVABRADINE
     Indication: Off label use
     Dosage: 0.2 MILLIGRAM/KILOGRAM, BID
     Route: 065

REACTIONS (2)
  - Supraventricular extrasystoles [Unknown]
  - Off label use [Unknown]
